FAERS Safety Report 7207059-7 (Version None)
Quarter: 2011Q1

REPORT INFORMATION
  Report Type: 
  Country: None (occurrence: None)
  Receive Date: 20110103
  Receipt Date: 20101224
  Transmission Date: 20110831
  Serious: Yes (Other)
  Sender: FDA-Public Use
  Company Number: B0691248A

PATIENT
  Sex: Female

DRUGS (3)
  1. SOLANAX [Concomitant]
     Route: 048
  2. LAMICTAL [Suspect]
     Indication: EPILEPSY
     Dosage: 175MG PER DAY
     Route: 048
  3. MYSTAN [Concomitant]
     Route: 048

REACTIONS (1)
  - HYPERAMYLASAEMIA [None]
